FAERS Safety Report 11022045 (Version 1)
Quarter: 2015Q2

REPORT INFORMATION
  Report Type: Spontaneous
  Country: JP (occurrence: JP)
  Receive Date: 20150413
  Receipt Date: 20150413
  Transmission Date: 20150821
  Serious: Yes (Hospitalization)
  Sender: FDA-Public Use
  Company Number: JP-PFIZER INC-2015007617

PATIENT
  Age: 61 Year
  Sex: Female
  Weight: 48 kg

DRUGS (5)
  1. SOLU-CORTEF [Suspect]
     Active Substance: HYDROCORTISONE SODIUM SUCCINATE
     Indication: HERPES ZOSTER
     Dosage: 500 MG, 1X/DAY
     Route: 042
     Dates: start: 20141224, end: 20141224
  2. METHYCOBAL [Suspect]
     Active Substance: METHYLCOBALAMIN
     Indication: DEAFNESS NEUROSENSORY
     Dosage: 500 ?G, 1X/DAY
     Route: 042
     Dates: start: 20141224, end: 20141224
  3. ADENOSINE. [Suspect]
     Active Substance: ADENOSINE
     Indication: DEAFNESS NEUROSENSORY
     Dosage: 20 MG, 1X/DAY
     Route: 042
     Dates: start: 20141224, end: 20141224
  4. VALTREX [Suspect]
     Active Substance: VALACYCLOVIR HYDROCHLORIDE
     Indication: HERPES ZOSTER
     Dosage: 1000 MG, 3X/DAY
     Route: 048
     Dates: start: 20141224, end: 20141224
  5. SIMVASTATIN. [Concomitant]
     Active Substance: SIMVASTATIN
     Indication: HYPERLIPIDAEMIA
     Dosage: 5 MG, UNK

REACTIONS (2)
  - Eczema [Recovered/Resolved]
  - Product use issue [Recovered/Resolved]

NARRATIVE: CASE EVENT DATE: 20141224
